FAERS Safety Report 18899072 (Version 1)
Quarter: 2021Q1

REPORT INFORMATION
  Report Type: Spontaneous
  Country: MG (occurrence: MG)
  Receive Date: 20210216
  Receipt Date: 20210216
  Transmission Date: 20210420
  Serious: Yes (Hospitalization)
  Sender: FDA-Public Use
  Company Number: MG-SUN PHARMACEUTICAL INDUSTRIES LTD-2021RR-280674

PATIENT
  Age: 7 Year
  Sex: Male
  Weight: 40 kg

DRUGS (2)
  1. DICLOFENAC [Suspect]
     Active Substance: DICLOFENAC
     Indication: PERIPHERAL ISCHAEMIA
     Dosage: UNK
     Route: 042
  2. BENZATHINE PENICILLIN [Suspect]
     Active Substance: PENICILLIN G BENZATHINE
     Indication: PERIPHERAL ISCHAEMIA
     Dosage: UNK
     Route: 042

REACTIONS (3)
  - Compartment syndrome [Unknown]
  - Peripheral ischaemia [Unknown]
  - Embolia cutis medicamentosa [Unknown]
